FAERS Safety Report 23182217 (Version 1)
Quarter: 2023Q4

REPORT INFORMATION
  Report Type: Spontaneous
  Country: US (occurrence: US)
  Receive Date: 20231114
  Receipt Date: 20231114
  Transmission Date: 20240109
  Serious: No
  Sender: FDA-Public Use
  Company Number: US-TEVA-2023-US-2940664

PATIENT
  Age: 75 Year
  Sex: Female
  Weight: 53.52 kg

DRUGS (1)
  1. ALBUTEROL SULFATE [Suspect]
     Active Substance: ALBUTEROL SULFATE
     Indication: Dyspnoea
     Dosage: 90 MCG/DOSE, TAKE 2 PUFFS EVERY 6 HOURS AS NEEDED, 2 PUFFS IN THE MORNING AND 2 PUFFS AT NIGHT

REACTIONS (5)
  - Tremor [Unknown]
  - Hypoacusis [Unknown]
  - Speech disorder [Unknown]
  - Body height decreased [Unknown]
  - Expired product administered [Unknown]

NARRATIVE: CASE EVENT DATE: 20231024
